FAERS Safety Report 5857689-X (Version None)
Quarter: 2008Q3

REPORT INFORMATION
  Report Type: 
  Country: None (occurrence: None)
  Receive Date: 20080826
  Receipt Date: 20080430
  Transmission Date: 20090109
  Serious: No
  Sender: FDA-Public Use
  Company Number: US-BAYER-200822258NA

PATIENT
  Age: 34 Year
  Sex: Female
  Weight: 61 kg

DRUGS (1)
  1. YASMIN [Suspect]
     Indication: CONTRACEPTION
     Route: 048
     Dates: start: 20021001, end: 20041101

REACTIONS (9)
  - ABDOMINAL PAIN [None]
  - DYSPAREUNIA [None]
  - IRRITABLE BOWEL SYNDROME [None]
  - LOSS OF LIBIDO [None]
  - MIGRAINE [None]
  - MUSCLE SPASMS [None]
  - SWELLING [None]
  - VULVOVAGINAL DRYNESS [None]
  - WEIGHT INCREASED [None]
